FAERS Safety Report 19091348 (Version 1)
Quarter: 2021Q2

REPORT INFORMATION
  Report Type: Spontaneous
  Country: FR (occurrence: FR)
  Receive Date: 20210405
  Receipt Date: 20210405
  Transmission Date: 20210717
  Serious: Yes (Life-Threatening, Hospitalization)
  Sender: FDA-Public Use
  Company Number: FR-MACLEODS PHARMACEUTICALS US LTD-MAC2021030631

PATIENT

DRUGS (4)
  1. HYDROXYZINE [Suspect]
     Active Substance: HYDROXYZINE HYDROCHLORIDE
     Indication: PRODUCT USED FOR UNKNOWN INDICATION
     Dosage: 6 GRAM, SINGLE
     Route: 065
  2. CLONAZEPAM. [Suspect]
     Active Substance: CLONAZEPAM
     Indication: PRODUCT USED FOR UNKNOWN INDICATION
     Dosage: 80 MILLIGRAM, SINGLE
     Route: 065
  3. GABAPENTIN. [Suspect]
     Active Substance: GABAPENTIN
     Indication: PRODUCT USED FOR UNKNOWN INDICATION
     Dosage: 1 GRAM, SINGLE
     Route: 065
  4. TRAMADOL. [Suspect]
     Active Substance: TRAMADOL
     Indication: PRODUCT USED FOR UNKNOWN INDICATION
     Dosage: 10 GRAM, SINGLE
     Route: 065

REACTIONS (12)
  - Hypotension [Recovered/Resolved]
  - Intentional overdose [Unknown]
  - Shock [Recovered/Resolved]
  - Mydriasis [Recovered/Resolved]
  - Electrocardiogram QT prolonged [Recovered/Resolved]
  - Epilepsy [Recovered/Resolved]
  - Loss of consciousness [Recovered/Resolved]
  - Bundle branch block right [Recovered/Resolved]
  - Ventricular tachycardia [Recovered/Resolved]
  - Cardiac arrest [Recovered/Resolved]
  - Acute kidney injury [Recovered/Resolved]
  - Hypoglycaemia [Recovered/Resolved]
